FAERS Safety Report 9347436 (Version 3)
Quarter: 2014Q2

REPORT INFORMATION
  Report Type: Report from Study
  Country: GB (occurrence: GB)
  Receive Date: 20130614
  Receipt Date: 20140422
  Transmission Date: 20141212
  Serious: Yes (Hospitalization)
  Sender: FDA-Public Use
  Company Number: GB-ROCHE-1236461

PATIENT
  Age: 85 Year
  Sex: Female
  Weight: 72.19 kg

DRUGS (19)
  1. LUCENTIS [Suspect]
     Indication: AGE-RELATED MACULAR DEGENERATION
     Route: 050
     Dates: start: 20080225
  2. LUCENTIS [Suspect]
     Route: 050
     Dates: start: 20120614
  3. LUCENTIS [Suspect]
     Dosage: 0.5 MG PER 0.05 ML
     Route: 050
     Dates: start: 20130319, end: 20130319
  4. OXYGEN THERAPY [Concomitant]
     Route: 065
     Dates: start: 20120713, end: 20130330
  5. SALBUTAMOL [Concomitant]
     Route: 065
     Dates: start: 20130331, end: 20130402
  6. TIOTROPIUM [Concomitant]
     Route: 065
     Dates: start: 20100816
  7. TIOTROPIUM [Concomitant]
     Route: 065
     Dates: start: 20130330
  8. LEVOTHYROXINE [Concomitant]
     Route: 065
     Dates: start: 20130330
  9. LEVOTHYROXINE [Concomitant]
     Route: 065
     Dates: start: 20060220
  10. FUROSEMIDE [Concomitant]
     Route: 065
     Dates: start: 20080103
  11. FUROSEMIDE [Concomitant]
     Route: 065
     Dates: start: 20130330
  12. BISOPROLOL [Concomitant]
     Route: 065
     Dates: start: 20090615
  13. BISOPROLOL [Concomitant]
     Route: 065
     Dates: start: 20130330
  14. GLYCERYL TRINITRATE [Concomitant]
     Route: 065
     Dates: start: 20050721
  15. GLYCERYL TRINITRATE [Concomitant]
     Route: 065
     Dates: start: 20050721
  16. NICORANDIL [Concomitant]
     Route: 065
     Dates: start: 20100816, end: 20130330
  17. BUDESONIDE [Concomitant]
     Route: 065
     Dates: start: 20100816
  18. BUDESONIDE [Concomitant]
     Route: 065
     Dates: start: 20130330
  19. WARFARIN [Concomitant]
     Route: 065
     Dates: start: 20120720, end: 20130330

REACTIONS (1)
  - Infective exacerbation of chronic obstructive airways disease [Recovered/Resolved]
